FAERS Safety Report 8763858 (Version 2)
Quarter: 2014Q2

REPORT INFORMATION
  Report Type: Spontaneous
  Country: US (occurrence: US)
  Receive Date: 20120831
  Receipt Date: 20140421
  Transmission Date: 20141212
  Serious: Yes (Other)
  Sender: FDA-Public Use
  Company Number: US-MYLANLABS-2012S1017344

PATIENT
  Age: 86 Year
  Sex: Female

DRUGS (5)
  1. TERIPARATIDE [Suspect]
     Indication: OSTEOPOROSIS
     Route: 058
  2. WARFARIN [Suspect]
     Route: 065
  3. PREDNISONE [Suspect]
     Route: 065
  4. CALCIUM [Concomitant]
     Route: 065
  5. VITAMIN D [Concomitant]

REACTIONS (2)
  - Calciphylaxis [Recovering/Resolving]
  - Skin necrosis [Recovered/Resolved]
